FAERS Safety Report 8064751-2 (Version None)
Quarter: 2012Q1

REPORT INFORMATION
  Report Type: 
  Country: None (occurrence: None)
  Receive Date: 20120124
  Receipt Date: 20120116
  Transmission Date: 20120608
  Serious: Yes (Other)
  Sender: FDA-Public Use
  Company Number: GB-ACCORD-012070

PATIENT
  Age: 72 Year
  Sex: Male

DRUGS (7)
  1. LEVETIRACETAM [Suspect]
     Indication: EPILEPSY
     Dosage: 250 MG TWICE DAILY WITH THE INTENTION OF UPTITRATING TO A TREATMENT DOSE OF 1,500 MG.
  2. SIMVASTATIN [Concomitant]
  3. INDAPAMIDE [Concomitant]
  4. CODEINE SULFATE [Concomitant]
  5. CITALOPRAM HYDROBROMIDE [Concomitant]
  6. AMITRIPTYLINE HCL [Concomitant]
  7. DIGOXIN [Concomitant]

REACTIONS (5)
  - DEPRESSION [None]
  - MOBILITY DECREASED [None]
  - DELIRIUM [None]
  - ASTHENIA [None]
  - INCONTINENCE [None]
